FAERS Safety Report 6250235-0 (Version None)
Quarter: 2009Q2

REPORT INFORMATION
  Report Type: 
  Country: None (occurrence: None)
  Receive Date: 20090626
  Receipt Date: 20090626
  Transmission Date: 20091009
  Serious: No
  Sender: FDA-Public Use
  Company Number: None

PATIENT
  Age: 65 Year
  Sex: Male
  Weight: 61.9 kg

DRUGS (1)
  1. PIPERACILLIN SODIUM AND TAZOBACTAM SODIUM [Suspect]
     Dosage: 2 GM TID IV
     Dates: start: 20090412, end: 20090429

REACTIONS (1)
  - CLOSTRIDIUM DIFFICILE COLITIS [None]
